FAERS Safety Report 20199315 (Version 1)
Quarter: 2021Q4

REPORT INFORMATION
  Report Type: Spontaneous
  Country: US (occurrence: None)
  Receive Date: 20211216
  Receipt Date: 20211216
  Transmission Date: 20220303
  Serious: No
  Sender: FDA-Public Use
  Company Number: None

PATIENT
  Age: 39 Year
  Sex: Male

DRUGS (4)
  1. AJOVY [Suspect]
     Active Substance: FREMANEZUMAB-VFRM
     Indication: Migraine
     Dosage: FREQUENCY : MONTHLY;?
     Route: 058
     Dates: start: 20211005
  2. AIMOVIG [Suspect]
     Active Substance: ERENUMAB-AOOE
     Indication: Migraine
     Dosage: FREQUENCY : MONTHLY;?
     Route: 058
     Dates: start: 20210408, end: 20210708
  3. MOTRIN [Concomitant]
     Active Substance: IBUPROFEN
  4. NEXPLANON [Concomitant]
     Active Substance: ETONOGESTREL

REACTIONS (2)
  - Alopecia [None]
  - Alopecia [None]
